FAERS Safety Report 5798922-2 (Version None)
Quarter: 2008Q3

REPORT INFORMATION
  Report Type: 
  Country: None (occurrence: None)
  Receive Date: 20080702
  Receipt Date: 20080627
  Transmission Date: 20090109
  Serious: Yes (Hospitalization)
  Sender: FDA-Public Use
  Company Number: US-PFIZER INC-2008054426

PATIENT
  Sex: Female
  Weight: 56.2 kg

DRUGS (9)
  1. DETROL LA [Suspect]
     Indication: INCONTINENCE
     Route: 048
  2. COMBIGAN [Suspect]
     Indication: OPEN ANGLE GLAUCOMA
     Dates: start: 20080205
  3. LUMIGAN [Concomitant]
  4. PILOCARPINE [Concomitant]
  5. ZOLOFT [Concomitant]
     Indication: DEPRESSION
  6. SPIRONOLACTONE [Concomitant]
  7. CARTIA XT [Concomitant]
     Indication: HYPERTENSION
  8. COUMADIN [Concomitant]
     Indication: ARTERIOSCLEROSIS
  9. XALATAN [Concomitant]
     Indication: GLAUCOMA
     Dosage: TEXT:1 TO BOTH EYES-FREQ:EVERY NIGHT
     Dates: start: 20000101

REACTIONS (3)
  - DIZZINESS [None]
  - FALL [None]
  - PELVIC FRACTURE [None]
